FAERS Safety Report 13211750 (Version 4)
Quarter: 2017Q1

REPORT INFORMATION
  Report Type: Spontaneous
  Country: TR (occurrence: TR)
  Receive Date: 20170210
  Receipt Date: 20170313
  Transmission Date: 20170428
  Serious: Yes (Hospitalization, Disabling, Other)
  Sender: FDA-Public Use
  Company Number: TR-BEH-2017077794

PATIENT
  Age: 76 Year
  Sex: Female
  Weight: 70 kg

DRUGS (6)
  1. FLANTADIN [Concomitant]
     Active Substance: DEFLAZACORT
     Dosage: 30 MG, 2X1
     Route: 065
  2. VASOCARD [Concomitant]
     Active Substance: AMLODIPINE BESYLATE
     Dosage: 1X1
     Route: 065
  3. ATARAX [Concomitant]
     Active Substance: HYDROXYZINE HYDROCHLORIDE
     Dosage: 1X1
     Route: 065
  4. PRIVIGEN [Suspect]
     Active Substance: HUMAN IMMUNOGLOBULIN G
     Indication: GUILLAIN-BARRE SYNDROME
     Dosage: 30 G/DAY
     Route: 042
     Dates: start: 20161209, end: 20161213
  5. FAMODIN [Concomitant]
     Active Substance: FAMOTIDINE
     Dosage: 2X1
     Route: 065
  6. RUPAFIN [Concomitant]
     Active Substance: RUPATADINE FUMARATE
     Dosage: 1X1
     Route: 065

REACTIONS (3)
  - Asthenia [Not Recovered/Not Resolved]
  - Disability [Not Recovered/Not Resolved]
  - Drug ineffective [Not Recovered/Not Resolved]

NARRATIVE: CASE EVENT DATE: 20161209
